FAERS Safety Report 8583891-2 (Version None)
Quarter: 2012Q3

REPORT INFORMATION
  Report Type: 
  Country: None (occurrence: None)
  Receive Date: 20120810
  Receipt Date: 20120802
  Transmission Date: 20120928
  Serious: Yes (Hospitalization, Other)
  Sender: FDA-Public Use
  Company Number: US-009507513-2012SP023039

PATIENT

DRUGS (2)
  1. NUVARING [Suspect]
     Indication: CONTRACEPTION
     Dosage: UNK
     Route: 067
     Dates: start: 20080101, end: 20100101
  2. PREDNISONE TAB [Concomitant]
     Indication: AUTOIMMUNE DISORDER
     Dosage: 5 MG, QD
     Route: 048
     Dates: start: 20010101

REACTIONS (6)
  - UNINTENDED PREGNANCY [None]
  - CEREBROVASCULAR ACCIDENT [None]
  - EMOTIONAL DISORDER [None]
  - ABORTION SPONTANEOUS [None]
  - THROMBOSIS [None]
  - PRE-ECLAMPSIA [None]
